FAERS Safety Report 6005436-3 (Version None)
Quarter: 2008Q4

REPORT INFORMATION
  Report Type: 
  Country: None (occurrence: None)
  Receive Date: 20081217
  Receipt Date: 20081210
  Transmission Date: 20090506
  Serious: Yes (Hospitalization)
  Sender: FDA-Public Use
  Company Number: US-JNJFOC-20081203025

PATIENT
  Sex: Female
  Weight: 99.79 kg

DRUGS (14)
  1. FENTANYL TRANSDERMAL SYSTEM [Suspect]
     Route: 062
  2. FENTANYL TRANSDERMAL SYSTEM [Suspect]
     Indication: BACK PAIN
     Route: 062
  3. LIPITOR [Concomitant]
     Indication: BLOOD CHOLESTEROL
     Route: 048
  4. BENAZEPRIL HYDROCHLORIDE [Concomitant]
     Indication: HEART RATE IRREGULAR
     Route: 048
  5. DILTIAZEM [Concomitant]
     Indication: HEART RATE IRREGULAR
     Route: 048
  6. ASPIRIN [Concomitant]
     Indication: CARDIAC DISORDER
     Route: 048
  7. AMIODARONE HCL [Concomitant]
     Indication: HEART RATE IRREGULAR
     Route: 048
  8. METOPROLOL TARTRATE [Concomitant]
     Indication: CARDIAC DISORDER
     Route: 048
  9. UNKNOWN DRUG [Concomitant]
     Indication: OSTEOPOROSIS
     Dosage: 750ML/3ML
     Route: 065
  10. ELMIRON [Concomitant]
     Indication: BLADDER SPASM
     Route: 048
  11. WARFARIN SODIUM [Concomitant]
     Indication: ANTICOAGULANT THERAPY
     Route: 048
  12. CELEBREX [Concomitant]
     Route: 048
  13. PROTONIX [Concomitant]
     Indication: DYSPEPSIA
     Route: 048
  14. FLUOXEDINE [Concomitant]
     Route: 048

REACTIONS (4)
  - FALL [None]
  - INAPPROPRIATE SCHEDULE OF DRUG ADMINISTRATION [None]
  - JOINT INJURY [None]
  - TREATMENT NONCOMPLIANCE [None]
